FAERS Safety Report 9353103 (Version 2)
Quarter: 2013Q3

REPORT INFORMATION
  Report Type: Spontaneous
  Country: US (occurrence: US)
  Receive Date: 20130618
  Receipt Date: 20130805
  Transmission Date: 20140515
  Serious: Yes (Hospitalization)
  Sender: FDA-Public Use
  Company Number: US-VIROPHARMA INCORPORATED-20130607CINRY4397

PATIENT
  Age: 19 Year
  Sex: Female
  Weight: 56.75 kg

DRUGS (7)
  1. CINRYZE (C1 ESTERASE INHIBITOR (HUMAN)) [Suspect]
     Indication: HEREDITARY ANGIOEDEMA
     Dosage: 1000-1500 UNITS
     Dates: start: 201202
  2. CINRYZE (C1 ESTERASE INHIBITOR (HUMAN)) [Suspect]
     Indication: PROPHYLAXIS
  3. PULMICORT [Concomitant]
     Indication: ASTHMA
     Dosage: UNKNOWN
     Route: 065
  4. SINGULAIR [Concomitant]
     Indication: ASTHMA
     Route: 048
  5. PERCOCET [Concomitant]
     Indication: PRODUCT USED FOR UNKNOWN INDICATION
     Dosage: 5/325 MG
     Route: 048
  6. KALBITOR [Concomitant]
     Indication: HEREDITARY ANGIOEDEMA
     Dosage: UNKNOWN
     Route: 065
  7. PREDNISONE [Concomitant]
     Indication: PRODUCT USED FOR UNKNOWN INDICATION
     Dosage: UNKNOWN
     Route: 048

REACTIONS (3)
  - Device related infection [Recovered/Resolved]
  - Device related infection [Recovered/Resolved]
  - Therapy change [Not Recovered/Not Resolved]
